FAERS Safety Report 4423862-0 (Version None)
Quarter: 2004Q3

REPORT INFORMATION
  Report Type: 
  Country: None (occurrence: None)
  Receive Date: 20040715
  Receipt Date: 20040412
  Transmission Date: 20050211
  Serious: Yes (Hospitalization, Other)
  Sender: FDA-Public Use
  Company Number: 2004200186US

PATIENT
  Age: 68 Year
  Sex: Male
  Weight: 90.7 kg

DRUGS (4)
  1. CELEBREX [Suspect]
     Indication: ARTHRITIS
     Dosage: 200 MG, QD, ORAL
     Route: 048
     Dates: start: 20020101, end: 20020501
  2. COUMADIN [Suspect]
     Indication: CARDIAC VALVE DISEASE
     Dosage: 7.5 MG
     Dates: start: 19900501
  3. MONOPRIL [Concomitant]
  4. PRILOSEC [Concomitant]

REACTIONS (2)
  - DRUG INTERACTION [None]
  - GASTRIC ULCER HAEMORRHAGE [None]
